FAERS Safety Report 16398297 (Version 1)
Quarter: 2019Q2

REPORT INFORMATION
  Report Type: Spontaneous
  Country: DK (occurrence: DK)
  Receive Date: 20190606
  Receipt Date: 20190606
  Transmission Date: 20190711
  Serious: Yes (Life-Threatening)
  Sender: FDA-Public Use
  Company Number: DK-TEVA-2019-DK-1058818

PATIENT
  Age: 74 Year
  Sex: Male

DRUGS (4)
  1. ENALAPRIL [Concomitant]
     Active Substance: ENALAPRIL
     Indication: HYPERTENSION
     Dosage: STRENGTH : 20MG
     Route: 048
     Dates: start: 20190131
  2. STESOLID EMULSION [Suspect]
     Active Substance: DIAZEPAM
     Indication: SEIZURE
     Dosage: DOSAGE: 2.5 MG GIVEN ONCE,?STRENGTH: 5 MG / ML
     Route: 042
     Dates: start: 20190510, end: 20190510
  3. IBUPROFEN. [Concomitant]
     Active Substance: IBUPROFEN
     Indication: PAIN
     Dosage: STRENGTH: 200MG
     Route: 048
     Dates: start: 20190204
  4. ACTILYSE [Concomitant]
     Active Substance: ALTEPLASE
     Indication: CEREBROVASCULAR ACCIDENT
     Dates: start: 20190510, end: 20190510

REACTIONS (1)
  - Respiratory arrest [Recovered/Resolved]

NARRATIVE: CASE EVENT DATE: 20190510
